FAERS Safety Report 4474118-1 (Version None)
Quarter: 2004Q4

REPORT INFORMATION
  Report Type: 
  Country: None (occurrence: None)
  Receive Date: 20041008
  Receipt Date: 20041001
  Transmission Date: 20050328
  Serious: Yes (Other)
  Sender: FDA-Public Use
  Company Number: RB-958-2004

PATIENT
  Sex: Male

DRUGS (1)
  1. BUPRENORPHINE HCL [Suspect]
     Indication: DRUG DEPENDENCE
     Route: 042

REACTIONS (3)
  - INTENTIONAL MISUSE [None]
  - MEDICATION ERROR [None]
  - PNEUMOCONIOSIS [None]
